FAERS Safety Report 23196553 (Version 1)
Quarter: 2023Q4

REPORT INFORMATION
  Report Type: Spontaneous
  Country: US (occurrence: US)
  Receive Date: 20231117
  Receipt Date: 20231117
  Transmission Date: 20240109
  Serious: Yes (Hospitalization)
  Sender: FDA-Public Use
  Company Number: US-MYLANLABS-2023M1122058

PATIENT
  Age: 56 Year
  Sex: Male

DRUGS (9)
  1. PEMETREXED [Suspect]
     Active Substance: PEMETREXED
     Indication: Lung adenocarcinoma
     Dosage: UNK, CYCLE (COMPLETED 4 CYCLES OF COMBINATION THERAPY WITH PEMBROLIZUMAB AND CARBOPLATIN)
     Route: 065
     Dates: start: 202006, end: 202008
  2. PEMETREXED [Suspect]
     Active Substance: PEMETREXED
     Dosage: UNK (5TH MAINTENANCE DOSE WITH PEMBROLIZUMAB)
     Route: 065
     Dates: start: 202009
  3. PEMETREXED [Suspect]
     Active Substance: PEMETREXED
     Dosage: UNK (ADDITIONAL DOSE WITH CARBOPLATIN)
     Route: 065
     Dates: start: 202010
  4. AMLODIPINE [Suspect]
     Active Substance: AMLODIPINE BESYLATE
     Indication: Hypertension
     Dosage: UNK
     Route: 065
  5. VANCOMYCIN [Suspect]
     Active Substance: VANCOMYCIN
     Indication: Clostridium difficile colitis
     Dosage: UNK
     Route: 065
     Dates: start: 2020
  6. PEMBROLIZUMAB [Suspect]
     Active Substance: PEMBROLIZUMAB
     Indication: Lung adenocarcinoma
     Dosage: UNK, CYCLE (COMPLETED 4 CYCLES OF COMBINATION THERAPY WITH PEMETREXED AND CARBOPLATIN)
     Route: 065
     Dates: start: 202006, end: 202008
  7. PEMBROLIZUMAB [Suspect]
     Active Substance: PEMBROLIZUMAB
     Dosage: UNK (5TH MAINTENANCE DOSE WITH PEMETREXED)
     Route: 065
     Dates: start: 202009
  8. CARBOPLATIN [Concomitant]
     Active Substance: CARBOPLATIN
     Indication: Lung adenocarcinoma
     Dosage: UNK, CYCLE (COMPLETED 4 CYCLES OF COMBINATION THERAPY WITH PEMBROLIZUMAB AND PEMETREXED)
     Route: 065
     Dates: start: 202006, end: 202008
  9. CARBOPLATIN [Concomitant]
     Active Substance: CARBOPLATIN
     Dosage: UNK,(ADDITIONAL DOSE WITH PEMETREXED)
     Route: 065
     Dates: start: 202010

REACTIONS (3)
  - Thrombotic thrombocytopenic purpura [Recovered/Resolved]
  - Haemolytic anaemia [Unknown]
  - Mental status changes [Unknown]

NARRATIVE: CASE EVENT DATE: 20200101
